FAERS Safety Report 21521115 (Version 2)
Quarter: 2024Q1

REPORT INFORMATION
  Report Type: Report from Study
  Country: IN (occurrence: IN)
  Receive Date: 20221028
  Receipt Date: 20240216
  Transmission Date: 20240410
  Serious: Yes (Other)
  Sender: FDA-Public Use
  Company Number: IN-002147023-NVSC2022IN052338

PATIENT

DRUGS (3)
  1. RUXOLITINIB [Suspect]
     Active Substance: RUXOLITINIB
     Indication: Primary myelofibrosis
     Dosage: 5 MG, BID
     Route: 048
     Dates: start: 20210707, end: 20220221
  2. RUXOLITINIB [Suspect]
     Active Substance: RUXOLITINIB
     Dosage: UNK
     Route: 048
     Dates: start: 20210907
  3. RUXOLITINIB [Suspect]
     Active Substance: RUXOLITINIB
     Dosage: 5 MG, BID
     Route: 048
     Dates: start: 20220222

REACTIONS (6)
  - Ascites [Recovering/Resolving]
  - Venoocclusive liver disease [Recovering/Resolving]
  - Hypertension [Unknown]
  - Platelet count abnormal [Not Recovered/Not Resolved]
  - Heart rate decreased [Unknown]
  - Full blood count abnormal [Not Recovered/Not Resolved]
